FAERS Safety Report 22002291 (Version 1)
Quarter: 2023Q1

REPORT INFORMATION
  Report Type: Spontaneous
  Country: US (occurrence: US)
  Receive Date: 20230217
  Receipt Date: 20230217
  Transmission Date: 20230417
  Serious: Yes (Death, Other)
  Sender: FDA-Public Use
  Company Number: US-drreddys-LIT/USA/23/0161165

PATIENT
  Age: 64 Year
  Sex: Male

DRUGS (3)
  1. DEXAMETHASONE [Suspect]
     Active Substance: DEXAMETHASONE
     Indication: COVID-19
  2. REMDESIVIR [Suspect]
     Active Substance: REMDESIVIR
     Indication: COVID-19
  3. BARICITINIB [Suspect]
     Active Substance: BARICITINIB
     Indication: COVID-19

REACTIONS (5)
  - Drug ineffective [Fatal]
  - Fungaemia [Unknown]
  - CD4 lymphocytes decreased [Unknown]
  - CD8 lymphocytes [Unknown]
  - Off label use [Unknown]
